FAERS Safety Report 8284104 (Version 2)
Quarter: 2014Q1

REPORT INFORMATION
  Report Type: Report from Study
  Country: FR (occurrence: FR)
  Receive Date: 20111212
  Receipt Date: 20140318
  Transmission Date: 20141002
  Serious: Yes (Hospitalization)
  Sender: FDA-Public Use
  Company Number: PHHY2011FR105562

PATIENT
  Age: 40 Year
  Sex: Female
  Weight: 65 kg

DRUGS (10)
  1. ICL670A [Suspect]
     Indication: IRON OVERLOAD
     Dosage: 1000 MG, PER DAY
     Dates: start: 20070122
  2. ICL670A [Suspect]
     Dates: start: 20090205
  3. ICL670A [Suspect]
     Dates: start: 20100202
  4. ICL670A [Suspect]
     Dosage: 15000 MG, DAILY
     Route: 048
     Dates: start: 20100420
  5. ICL670A [Suspect]
     Dosage: 1500 MG, PER DAY
     Dates: start: 20100817
  6. ICL670A [Suspect]
     Dosage: 1500 MG, PER DAY
     Dates: start: 20110817
  7. ICL670A [Suspect]
     Dates: start: 20111215
  8. ICL670A [Suspect]
     Dosage: 1500 MG, PER DAY
     Dates: start: 20130131
  9. HYDREA [Concomitant]
     Indication: SICKLE CELL ANAEMIA
     Dates: start: 20090705
  10. HYDREA [Concomitant]
     Dosage: 2 DF, PER DAY
     Dates: start: 20101021

REACTIONS (3)
  - Psychiatric decompensation [Recovered/Resolved]
  - Mania [Recovered/Resolved]
  - Venous thrombosis [Recovered/Resolved]
